FAERS Safety Report 17769031 (Version 1)
Quarter: 2020Q2

REPORT INFORMATION
  Report Type: Report from Study
  Country: None (occurrence: US)
  Receive Date: 20200512
  Receipt Date: 20200512
  Transmission Date: 20200714
  Serious: Yes (Other)
  Sender: FDA-Public Use
  Company Number: US-ABBVIE-20K-163-3305150-00

PATIENT
  Sex: Female

DRUGS (2)
  1. HUMIRA [Suspect]
     Active Substance: ADALIMUMAB
     Indication: PSORIASIS
     Dosage: CITRATE FREE
     Route: 058
  2. HUMIRA [Suspect]
     Active Substance: ADALIMUMAB
     Indication: PSORIATIC ARTHROPATHY

REACTIONS (15)
  - Drug ineffective [Unknown]
  - Uveitis [Not Recovered/Not Resolved]
  - Asthenia [Unknown]
  - Gingival disorder [Unknown]
  - Paronychia [Recovering/Resolving]
  - Headache [Not Recovered/Not Resolved]
  - Fatigue [Unknown]
  - Condition aggravated [Recovering/Resolving]
  - Psoriasis [Recovering/Resolving]
  - Anxiety [Unknown]
  - Gingival pain [Unknown]
  - Systemic lupus erythematosus [Unknown]
  - Lichen sclerosus [Recovering/Resolving]
  - Herpes virus infection [Recovering/Resolving]
  - Pain [Recovered/Resolved]
